FAERS Safety Report 15963885 (Version 1)
Quarter: 2019Q1

REPORT INFORMATION
  Report Type: Spontaneous
  Country: US (occurrence: US)
  Receive Date: 20190214
  Receipt Date: 20190214
  Transmission Date: 20190417
  Serious: No
  Sender: FDA-Public Use
  Company Number: US-ACTELION-A-NJ2019-185725

PATIENT
  Age: 75 Year
  Sex: Female
  Weight: 56.69 kg

DRUGS (4)
  1. LETAIRIS [Concomitant]
     Active Substance: AMBRISENTAN
  2. WARFARIN [Concomitant]
     Active Substance: WARFARIN
  3. UPTRAVI [Suspect]
     Active Substance: SELEXIPAG
     Dosage: 400 MCG AM, 600 MCG PM
     Route: 048
  4. UPTRAVI [Suspect]
     Active Substance: SELEXIPAG
     Indication: PULMONARY ARTERIAL HYPERTENSION
     Dosage: 600 MCG, BID
     Route: 048

REACTIONS (8)
  - Gastrooesophageal reflux disease [Unknown]
  - Upper-airway cough syndrome [Unknown]
  - Pain in extremity [Unknown]
  - Nasal congestion [Unknown]
  - Abdominal distension [Unknown]
  - Condition aggravated [Unknown]
  - Headache [Unknown]
  - Sinusitis [Unknown]
